FAERS Safety Report 25806790 (Version 1)
Quarter: 2025Q3

REPORT INFORMATION
  Report Type: Spontaneous
  Country: EU (occurrence: EU)
  Receive Date: 20250916
  Receipt Date: 20250916
  Transmission Date: 20251020
  Serious: Yes (Hospitalization)
  Sender: ANI
  Company Number: EU-ANIPHARMA-2025-FR-000122

PATIENT
  Age: 91 Year
  Sex: Female

DRUGS (14)
  1. CANDESARTAN CILEXETIL [Suspect]
     Active Substance: CANDESARTAN CILEXETIL
     Indication: Hypertension
     Route: 048
     Dates: end: 20240512
  2. LEVOTHYROXINE [Concomitant]
     Active Substance: LEVOTHYROXINE
  3. SODIUM [Concomitant]
     Active Substance: SODIUM
  4. POTASSIUM [Concomitant]
     Active Substance: POTASSIUM
  5. ALLOPURINOL [Concomitant]
     Active Substance: ALLOPURINOL
  6. OXAZEPAM [Concomitant]
     Active Substance: OXAZEPAM
  7. URAPIDIL [Suspect]
     Active Substance: URAPIDIL
     Route: 048
  8. HYDROCHLOROTHIAZIDE [Concomitant]
     Active Substance: HYDROCHLOROTHIAZIDE
  9. FUROSEMIDE [Concomitant]
     Active Substance: FUROSEMIDE
  10. NICARDIPINE [Concomitant]
     Active Substance: NICARDIPINE
  11. ATORVASTATIN [Concomitant]
     Active Substance: ATORVASTATIN
  12. ASPIRIN [Concomitant]
     Active Substance: ASPIRIN
  13. FERROUS FUMARATE [Concomitant]
     Active Substance: FERROUS FUMARATE
  14. LANSOPRAZOLE [Concomitant]
     Active Substance: LANSOPRAZOLE

REACTIONS (2)
  - Acute kidney injury [Unknown]
  - Normocytic anaemia [Unknown]

NARRATIVE: CASE EVENT DATE: 20240522
